FAERS Safety Report 12376225 (Version 1)
Quarter: 2016Q2

REPORT INFORMATION
  Report Type: Spontaneous
  Country: None (occurrence: None)
  Receive Date: 20160516
  Receipt Date: 20160516
  Transmission Date: 20160815
  Serious: Yes (Hospitalization)
  Sender: FDA-Public Use
  Company Number: None

PATIENT
  Age: 82 Year
  Sex: Female
  Weight: 93.9 kg

DRUGS (1)
  1. MEMANTINE HYDROCHLORIDE. [Suspect]
     Active Substance: MEMANTINE HYDROCHLORIDE
     Dates: end: 20160506

REACTIONS (7)
  - Dysarthria [None]
  - Confusional state [None]
  - Leukocytosis [None]
  - Sleep disorder [None]
  - Asthenia [None]
  - Lethargy [None]
  - Seizure [None]

NARRATIVE: CASE EVENT DATE: 20160506
